FAERS Safety Report 19218302 (Version 2)
Quarter: 2021Q2

REPORT INFORMATION
  Report Type: Spontaneous
  Country: FR (occurrence: FR)
  Receive Date: 20210505
  Receipt Date: 20210513
  Transmission Date: 20210717
  Serious: Yes (Hospitalization, Other)
  Sender: FDA-Public Use
  Company Number: FR-INDIVIOR EUROPE LIMITED-INDV-129494-2021

PATIENT

DRUGS (5)
  1. SUBUTEX [Suspect]
     Active Substance: BUPRENORPHINE HYDROCHLORIDE
     Indication: DRUG ABUSE
     Dosage: 16 MILLIGRAM, 3 TIMES/WK
     Route: 042
     Dates: start: 2015
  2. ALCOHOL. [Suspect]
     Active Substance: ALCOHOL
     Indication: ALCOHOL USE
     Dosage: 1 LITRE BEER/DAY
     Route: 048
     Dates: start: 1989
  3. SYMBICORT [Concomitant]
     Active Substance: BUDESONIDE\FORMOTEROL FUMARATE DIHYDRATE
     Indication: PRODUCT USED FOR UNKNOWN INDICATION
     Dosage: UNK, PRN
     Route: 065
  4. METHADONE [Suspect]
     Active Substance: METHADONE HYDROCHLORIDE
     Indication: DRUG ABUSE
     Dosage: UNK
     Route: 065
     Dates: start: 2012, end: 2015
  5. NICOTIANA TABACUM [Suspect]
     Active Substance: TOBACCO LEAF
     Indication: TOBACCO USER
     Dosage: 15 CIGARETTES PER DAY
     Route: 065

REACTIONS (9)
  - Hodgkin^s disease [Unknown]
  - Drug abuse [Not Recovered/Not Resolved]
  - Weight decreased [Unknown]
  - Cholestasis [Recovered/Resolved]
  - Miosis [Recovering/Resolving]
  - Intentional product use issue [Unknown]
  - Choroiditis [Recovering/Resolving]
  - Skin candida [Recovering/Resolving]
  - Inappropriate schedule of product administration [Unknown]

NARRATIVE: CASE EVENT DATE: 1994
